FAERS Safety Report 10965359 (Version 1)
Quarter: 2015Q1

REPORT INFORMATION
  Report Type: Spontaneous
  Country: US (occurrence: None)
  Receive Date: 20150327
  Receipt Date: 20150327
  Transmission Date: 20150721
  Serious: Yes (Life-Threatening, Other)
  Sender: FDA-Public Use
  Company Number: None

PATIENT

DRUGS (1)
  1. TOPAMAX [Suspect]
     Active Substance: TOPIRAMATE
     Indication: BIPOLAR DISORDER
     Dosage: 2 : 200MG TABLETS. ONCE : MORNING ONCE : PM. MOUTH
     Route: 048
     Dates: start: 200402, end: 201310

REACTIONS (2)
  - Arrhythmia [None]
  - Cardiac valve disease [None]

NARRATIVE: CASE EVENT DATE: 200405
